FAERS Safety Report 5282237-5 (Version None)
Quarter: 2007Q1

REPORT INFORMATION
  Report Type: 
  Country: None (occurrence: None)
  Receive Date: 20070330
  Receipt Date: 20070320
  Transmission Date: 20070707
  Serious: Yes (Life-Threatening, Hospitalization)
  Sender: FDA-Public Use
  Company Number: US-PFIZER INC-2007022354

PATIENT
  Age: 59 Year
  Sex: Female

DRUGS (6)
  1. LYRICA [Suspect]
     Indication: GLOSSODYNIA
     Route: 048
     Dates: start: 20070303, end: 20070304
  2. BLINDED THERAPY [Suspect]
     Indication: HYPERTONIC BLADDER
     Route: 048
     Dates: start: 20070206, end: 20070305
  3. DIDROGYL [Concomitant]
  4. TIMOLOL MALEATE [Concomitant]
     Dates: start: 20030601
  5. BENZYDAMINE HYDROCHLORIDE [Concomitant]
  6. ALL OTHER THERAPEUTIC PRODUCTS [Concomitant]
     Dates: start: 20061115

REACTIONS (5)
  - CARDIAC ARREST [None]
  - CARDIAC TAMPONADE [None]
  - PERICARDIAL EFFUSION [None]
  - SYNCOPE [None]
  - VENTRICLE RUPTURE [None]
